FAERS Safety Report 5062586-6 (Version None)
Quarter: 2006Q3

REPORT INFORMATION
  Report Type: 
  Country: None (occurrence: None)
  Receive Date: 20060703
  Receipt Date: 20051202
  Transmission Date: 20061208
  Serious: No
  Sender: FDA-Public Use
  Company Number: 2005S1011622

PATIENT
  Age: 37 Year
  Sex: Male

DRUGS (8)
  1. CLOZAPINE [Suspect]
     Indication: DRUG USE FOR UNKNOWN INDICATION
     Dosage: SEE IMAGE
     Route: 048
     Dates: start: 20050913
  2. CLOZAPINE [Suspect]
     Indication: DRUG USE FOR UNKNOWN INDICATION
     Dosage: SEE IMAGE
     Route: 048
     Dates: start: 20050913
  3. PANTOPRAZOLE SODIUM [Concomitant]
  4. RISPERIDONE [Concomitant]
  5. BENZTROPINE MESYLATE [Concomitant]
  6. IBUPROFEN [Concomitant]
  7. GABAPENTIN [Concomitant]
  8. PARACETAMOL/DEXTROPROPOXYPHENE NAPSILATE [Concomitant]

REACTIONS (1)
  - GRANULOCYTOPENIA [None]
